FAERS Safety Report 4997470-7 (Version None)
Quarter: 2006Q2

REPORT INFORMATION
  Report Type: 
  Country: None (occurrence: None)
  Receive Date: 20060509
  Receipt Date: 20041207
  Transmission Date: 20061013
  Serious: Yes (Hospitalization, Disabling)
  Sender: FDA-Public Use
  Company Number: US-MERCK-0412USA01039

PATIENT
  Age: 56 Year
  Sex: Male
  Weight: 96 kg

DRUGS (12)
  1. VIOXX [Suspect]
     Indication: ARTHRITIS
     Route: 048
     Dates: start: 19990926, end: 20040930
  2. VIOXX [Suspect]
     Route: 048
     Dates: start: 19990926, end: 20040930
  3. VIOXX [Suspect]
     Route: 048
     Dates: start: 19990926, end: 20040930
  4. EXTRA STRENGTH TYLENOL [Concomitant]
     Route: 048
  5. ASPIRIN [Concomitant]
     Route: 048
  6. PREVACID [Concomitant]
     Route: 065
  7. TEVETEN [Concomitant]
     Route: 065
  8. TOPROL-XL [Concomitant]
     Route: 065
  9. CARDIZEM [Concomitant]
     Route: 065
  10. LIPITOR [Concomitant]
     Route: 065
  11. NITROGLYCERIN [Concomitant]
     Route: 065
  12. LORTAB [Concomitant]
     Route: 065

REACTIONS (14)
  - ANEURYSM [None]
  - ANGINA PECTORIS [None]
  - AORTIC ANEURYSM [None]
  - CHEST PAIN [None]
  - CORONARY ARTERY DISEASE [None]
  - DIZZINESS [None]
  - DYSPNOEA [None]
  - FATIGUE [None]
  - HEADACHE [None]
  - MYOCARDIAL INFARCTION [None]
  - MYOCARDIAL ISCHAEMIA [None]
  - NECK MASS [None]
  - PYREXIA [None]
  - TUMOUR EXCISION [None]
